FAERS Safety Report 6839411-3 (Version None)
Quarter: 2010Q3

REPORT INFORMATION
  Report Type: 
  Country: None (occurrence: None)
  Receive Date: 20100714
  Receipt Date: 20100713
  Transmission Date: 20110219
  Serious: Yes (Hospitalization)
  Sender: FDA-Public Use
  Company Number: NL-ROXANE LABORATORIES, INC.-2010-RO-00829RO

PATIENT
  Age: 60 Year
  Sex: Female

DRUGS (1)
  1. NARATRIPTAN [Suspect]
     Indication: MIGRAINE

REACTIONS (1)
  - COLITIS ISCHAEMIC [None]
